FAERS Safety Report 5269946-9 (Version None)
Quarter: 2007Q1

REPORT INFORMATION
  Report Type: 
  Country: None (occurrence: None)
  Receive Date: 20061212
  Receipt Date: 20051024
  Transmission Date: 20070707
  Serious: No
  Sender: FDA-Public Use
  Company Number: RS005579-USA

PATIENT
  Sex: Female

DRUGS (1)
  1. ACIPHEX [Suspect]
     Indication: BARRETT'S OESOPHAGUS
     Dosage: ORAL
     Route: 048
     Dates: start: 20030101, end: 20050425

REACTIONS (1)
  - CONVULSION [None]
